FAERS Safety Report 23873461 (Version 1)
Quarter: 2024Q2

REPORT INFORMATION
  Report Type: Report from Study
  Country: CA (occurrence: CA)
  Receive Date: 20240520
  Receipt Date: 20240520
  Transmission Date: 20240716
  Serious: Yes (Other)
  Sender: FDA-Public Use
  Company Number: CA-ABBVIE-20K-028-3570860-00

PATIENT
  Age: 50 Year
  Sex: Male

DRUGS (31)
  1. SKYRIZI [Suspect]
     Active Substance: RISANKIZUMAB-RZAA
     Indication: Psoriasis
     Route: 058
     Dates: start: 20200430, end: 20200527
  2. SKYRIZI [Suspect]
     Active Substance: RISANKIZUMAB-RZAA
     Route: 058
     Dates: start: 20200528
  3. FUCIDIN [Concomitant]
     Active Substance: FUSIDATE SODIUM
     Indication: Skin papilloma
     Dosage: 1 APPLICATION?FREQUENCY TEXT: AS NEEDED
     Route: 061
     Dates: start: 20200430
  4. ACETAMINOPHEN [Concomitant]
     Active Substance: ACETAMINOPHEN
     Indication: Osteoarthritis
     Dosage: TIME INTERVAL: 0.33333333 DAYS
     Route: 048
     Dates: start: 201801
  5. GABAPENTIN [Concomitant]
     Active Substance: GABAPENTIN
     Indication: Osteoarthritis
     Dosage: LAST ADMIN DATE: 2020
     Route: 048
     Dates: start: 20200420
  6. GABAPENTIN [Concomitant]
     Active Substance: GABAPENTIN
     Indication: Osteoarthritis
     Dosage: FREQUENCY TEXT: AT BED TIME
     Route: 048
     Dates: start: 20200812
  7. AMLODIPINE [Concomitant]
     Active Substance: AMLODIPINE BESYLATE
     Indication: Hypertension
     Route: 048
     Dates: start: 20200413
  8. AMLODIPINE [Concomitant]
     Active Substance: AMLODIPINE BESYLATE
     Indication: Hypertension
     Route: 048
     Dates: start: 20210423
  9. FUROSEMIDE [Concomitant]
     Active Substance: FUROSEMIDE
     Indication: Chronic kidney disease
     Route: 048
     Dates: start: 20200406
  10. LOPERAMIDE [Concomitant]
     Active Substance: LOPERAMIDE
     Indication: Diarrhoea
     Route: 048
     Dates: start: 20170616
  11. LOPERAMIDE [Concomitant]
     Active Substance: LOPERAMIDE
     Indication: Diarrhoea
     Route: 048
     Dates: start: 20170616
  12. TYLENOL [Concomitant]
     Active Substance: ACETAMINOPHEN
     Indication: Osteoarthritis
     Dosage: FREQUENCY TEXT: AS NEEDED
     Route: 048
     Dates: start: 20170616
  13. QUETIAPINE [Concomitant]
     Active Substance: QUETIAPINE
     Indication: Depression
     Dosage: FREQUENCY TEXT: ONCE DAILY AT BED TIME
     Route: 048
     Dates: start: 20170616
  14. BISOPROLOL [Concomitant]
     Active Substance: BISOPROLOL\BISOPROLOL FUMARATE
     Indication: Hypertension
     Route: 048
     Dates: start: 20200406
  15. HYDROCHLOROTHIAZIDE [Concomitant]
     Active Substance: HYDROCHLOROTHIAZIDE
     Indication: Hypertension
     Route: 048
     Dates: start: 20200812, end: 20200812
  16. DOXAZOSIN [Concomitant]
     Active Substance: DOXAZOSIN MESYLATE
     Indication: Hypertension
     Route: 048
     Dates: start: 20200812
  17. OLOPATADINE [Concomitant]
     Active Substance: OLOPATADINE
     Indication: Seasonal allergy
     Dosage: 2GTTS?FREQUENCY TEXT: AS NEEDED
     Dates: start: 20200715
  18. HYDROXYZINE [Concomitant]
     Active Substance: HYDROXYZINE HYDROCHLORIDE
     Indication: Pruritus
     Route: 048
     Dates: start: 20200629
  19. ALBUTEROL [Concomitant]
     Active Substance: ALBUTEROL
     Indication: Dyspnoea
     Route: 055
     Dates: start: 20200606
  20. FERRLECIT [Concomitant]
     Active Substance: SODIUM FERRIC GLUCONATE COMPLEX
     Indication: Anaemia
     Dosage: FREQUENCY TEXT: EVERY OTHER WEEK/PICC LINE
     Dates: start: 20221113
  21. EPREX [Concomitant]
     Active Substance: ERYTHROPOIETIN
     Indication: Deep vein thrombosis
     Dosage: FREQUENCY TEXT: PICC LINE, 3 TIMES PER WEEK
     Dates: start: 20230301
  22. HYDROMORPHONE [Concomitant]
     Active Substance: HYDROMORPHONE
     Indication: Back pain
     Dosage: FREQUENCY TEXT: AS NEEDED
     Route: 048
     Dates: start: 20230331
  23. RAMIPRIL [Concomitant]
     Active Substance: RAMIPRIL
     Indication: Hypertension
     Route: 048
     Dates: start: 20210224
  24. VENLAFAXINE [Concomitant]
     Active Substance: VENLAFAXINE HYDROCHLORIDE
     Indication: Back pain
     Route: 048
     Dates: start: 20230324
  25. PERINDOPRIL [Concomitant]
     Active Substance: PERINDOPRIL
     Indication: Product used for unknown indication
     Dosage: TIME INTERVAL: 0.33333333 WEEKS
     Route: 048
     Dates: start: 20230315
  26. RISPERIDONE [Concomitant]
     Active Substance: RISPERIDONE
     Indication: Depression
     Route: 048
     Dates: start: 20230515
  27. VANCOMYCIN [Concomitant]
     Active Substance: VANCOMYCIN
     Indication: Osteomyelitis
     Dosage: TIME INTERVAL: 0.33333333 WEEKS: FREQUENCY TEXT: PICC LINE
     Dates: start: 20221204
  28. SODIUM POLYSTYRENE SULFONATE [Concomitant]
     Active Substance: SODIUM POLYSTYRENE SULFONATE
     Indication: Chronic kidney disease
     Route: 048
     Dates: start: 20210224
  29. CALCIUM CARBONATE [Concomitant]
     Active Substance: CALCIUM CARBONATE
     Indication: Blood calcium decreased
     Route: 048
     Dates: start: 20220308
  30. VITAMIN E [Concomitant]
     Active Substance: .ALPHA.-TOCOPHEROL
     Indication: Routine health maintenance
     Route: 048
     Dates: start: 20220223
  31. ISOSORBIDE DINITRATE [Concomitant]
     Active Substance: ISOSORBIDE DINITRATE
     Indication: Dyspnoea
     Dosage: TIME INTERVAL: 0.33333333 DAYS
     Route: 048
     Dates: start: 20210209

REACTIONS (2)
  - Back pain [Unknown]
  - Dyspnoea [Not Recovered/Not Resolved]

NARRATIVE: CASE EVENT DATE: 20200605
